FAERS Safety Report 17544817 (Version 1)
Quarter: 2020Q1

REPORT INFORMATION
  Report Type: Spontaneous
  Country: DE (occurrence: DE)
  Receive Date: 20200316
  Receipt Date: 20200316
  Transmission Date: 20200409
  Serious: Yes (Hospitalization, Other)
  Sender: FDA-Public Use
  Company Number: DE-PFIZER INC-2020109485

PATIENT
  Age: 26 Year
  Sex: Female
  Weight: 90 kg

DRUGS (1)
  1. CYTOTEC [Suspect]
     Active Substance: MISOPROSTOL
     Indication: LABOUR INDUCTION
     Dosage: 1 TABLET ON THE FIRST DAY, TWICE THE AMOUNT ON THE SECOND DAY, DOUBLE ON THE THIRD DAY
     Route: 048
     Dates: start: 20150124, end: 20150127

REACTIONS (5)
  - Cardiovascular disorder [Recovered/Resolved]
  - Vaginal haemorrhage [Recovered/Resolved]
  - Uterine atony [Recovered/Resolved]
  - Off label use [Unknown]
  - Product use in unapproved indication [Unknown]

NARRATIVE: CASE EVENT DATE: 201501
